FAERS Safety Report 20735534 (Version 2)
Quarter: 2022Q2

REPORT INFORMATION
  Report Type: Spontaneous
  Country: FR (occurrence: FR)
  Receive Date: 20220421
  Receipt Date: 20220502
  Transmission Date: 20220721
  Serious: Yes (Hospitalization)
  Sender: FDA-Public Use
  Company Number: None

PATIENT
  Age: 36 Year
  Sex: Male

DRUGS (11)
  1. CEFUROXIME SODIUM [Suspect]
     Active Substance: CEFUROXIME SODIUM
     Indication: Infection
     Dosage: 1 DOSAGE FORM (1DF)
     Route: 042
     Dates: start: 20211224, end: 20211224
  2. CEFUROXIME SODIUM [Suspect]
     Active Substance: CEFUROXIME SODIUM
     Indication: Nausea
  3. REMIFENTANIL [Suspect]
     Active Substance: REMIFENTANIL
     Indication: General anaesthesia
     Dosage: 8 MICROGRAM (2 ?G RENEWS 4 TIMES)
     Route: 042
     Dates: start: 20211224, end: 20211224
  4. REMIFENTANIL [Suspect]
     Active Substance: REMIFENTANIL
     Dosage: 32 MICROGRAM, QD (2 ?G RENEWS 4 TIMES)
     Route: 042
     Dates: start: 20211224, end: 20211224
  5. IBUPROFEN [Suspect]
     Active Substance: IBUPROFEN
     Indication: Pain
     Dosage: 400 MILLIGRAM, QD (400 MG, QD, 400MG IN ONE TAKE)
     Route: 048
     Dates: start: 20211220, end: 20211220
  6. PROPOFOL [Suspect]
     Active Substance: PROPOFOL
     Indication: General anaesthesia
     Dosage: 30 MILLIGRAM (30 MG RENEWED 7X)
     Route: 042
     Dates: start: 20211224, end: 20211224
  7. ONDANSETRON [Suspect]
     Active Substance: ONDANSETRON
     Indication: Nausea
     Dosage: 4 MILLIGRAM, QD (4MG SINGLE DOSE)
     Route: 042
     Dates: start: 20211224, end: 20211224
  8. DROPERIDOL [Suspect]
     Active Substance: DROPERIDOL
     Indication: Nausea
     Dosage: 1.25 MILLIGRAM, QD (1.25 MG SINGLE DOSE)
     Route: 042
     Dates: start: 20211224, end: 20211224
  9. ULTRAVIST [Suspect]
     Active Substance: IOPROMIDE
     Indication: Computerised tomogram
     Dosage: 1 DOSAGE FORM (1DF) (370 MG IODINE/ML)
     Route: 042
     Dates: start: 20211222, end: 20211222
  10. PHLOROGLUCINOL [Suspect]
     Active Substance: PHLOROGLUCINOL
     Indication: Pain
     Dosage: UNK (40 MG+40 ?G/4 ML (SINGLE ADMINISTRATION OF 2 VIALS OF 40MG))
     Route: 042
     Dates: start: 20211222, end: 20211222
  11. PHLOROGLUCINOL [Suspect]
     Active Substance: PHLOROGLUCINOL
     Indication: Pain
     Dosage: UNK (40 MG+40 ?G/4 ML (SINGLE ADMINISTRATION OF 2 VIALS OF 40MG))
     Route: 042
     Dates: start: 20211222, end: 20211222

REACTIONS (1)
  - Fixed eruption [Recovered/Resolved]

NARRATIVE: CASE EVENT DATE: 20211224
